FAERS Safety Report 21787015 (Version 1)
Quarter: 2022Q4

REPORT INFORMATION
  Report Type: Spontaneous
  Country: CA (occurrence: CA)
  Receive Date: 20221228
  Receipt Date: 20221228
  Transmission Date: 20230113
  Serious: Yes (Other)
  Sender: FDA-Public Use
  Company Number: CA-BAXTER-2022BAX031225

PATIENT
  Age: 83 Year
  Sex: Female
  Weight: 72.5 kg

DRUGS (8)
  1. CYCLOPHOSPHAMIDE [Suspect]
     Active Substance: CYCLOPHOSPHAMIDE
     Indication: Acquired haemophilia
     Dosage: 150 MG DAILY
     Route: 065
     Dates: start: 20220904, end: 20221125
  2. RITUXIMAB [Suspect]
     Active Substance: RITUXIMAB
     Indication: Acquired haemophilia
     Dosage: FOR CYCLE 1, 50 ML X 30 MIN THEN INCREASE BY 50ML EVERY 30 MIN FOR MAX OF 400ML
     Route: 065
  3. RITUXIMAB [Suspect]
     Active Substance: RITUXIMAB
     Dosage: FOR CYCLE 2 AND NO PREVIOUS REACTION, 200MG X 30 MIN THEN 400ML
     Route: 065
  4. RITUXIMAB [Suspect]
     Active Substance: RITUXIMAB
     Dosage: 375MG/M2 X 4 DOSES (WEEKLY)
     Route: 065
  5. ACETAMINOPHEN [Suspect]
     Active Substance: ACETAMINOPHEN
     Indication: Acquired haemophilia
     Dosage: CYCLE 50 ML X 30 MIN THEN INCREASE BY 50ML EVERY 30 MIN FOR MAX OF 400ML
     Route: 065
  6. ACETAMINOPHEN [Suspect]
     Active Substance: ACETAMINOPHEN
     Dosage: CYCLE 2 AND NO PREVIOUS REACTION, 200MG X 30 MIN THEN 400ML, 1000MG
     Route: 048
  7. OBIZUR [Concomitant]
     Active Substance: ANTIHEMOPHILIC FACTOR PORCINE, B-DOMAIN TRUNCATED RECOMBINANT
     Indication: Haemostasis
     Dosage: UNK
     Route: 065
  8. PREDNISONE [Concomitant]
     Active Substance: PREDNISONE
     Indication: Product used for unknown indication
     Dosage: 1 MG/KG, DAILY (70MG)
     Route: 048
     Dates: start: 202209, end: 20221125

REACTIONS (10)
  - Atelectasis [Unknown]
  - Biliary dilatation [Unknown]
  - Imperforate oesophagus [Unknown]
  - Pleural effusion [Unknown]
  - Bronchial wall thickening [Unknown]
  - Respiratory tract inflammation [Unknown]
  - Hiatus hernia [Unknown]
  - Decreased appetite [Unknown]
  - Nausea [Unknown]
  - Abdominal pain [Unknown]
